FAERS Safety Report 23533587 (Version 1)
Quarter: 2024Q1

REPORT INFORMATION
  Report Type: Spontaneous
  Country: PL (occurrence: PL)
  Receive Date: 20240216
  Receipt Date: 20240216
  Transmission Date: 20240409
  Serious: Yes (Other)
  Sender: FDA-Public Use
  Company Number: PL-AMERICAN REGENT INC-2024000552

PATIENT
  Age: 68 Year
  Sex: Female
  Weight: 70 kg

DRUGS (1)
  1. VENOFER [Suspect]
     Active Substance: IRON SUCROSE
     Indication: Iron deficiency anaemia
     Dosage: 100 MILLIGRAM, 1 IN 24 HR
     Route: 042
     Dates: start: 20190527, end: 20190603

REACTIONS (2)
  - Vessel puncture site phlebitis [Recovered/Resolved]
  - Overdose [Unknown]
